FAERS Safety Report 12207203 (Version 1)
Quarter: 2016Q1

REPORT INFORMATION
  Report Type: Spontaneous
  Country: US (occurrence: None)
  Receive Date: 20160323
  Receipt Date: 20160323
  Transmission Date: 20160526
  Serious: No
  Sender: FDA-Public Use
  Company Number: None

PATIENT
  Age: 37 Year
  Sex: Female

DRUGS (12)
  1. AMIKACIN [Concomitant]
     Active Substance: AMIKACIN
  2. HEPARIN [Concomitant]
     Active Substance: HEPARIN SODIUM
  3. VALGANCICLOVIR [Concomitant]
     Active Substance: VALGANCICLOVIR
  4. VALGANCICLOVIR [Suspect]
     Active Substance: VALGANCICLOVIR
     Route: 048
  5. LINEZOLID. [Suspect]
     Active Substance: LINEZOLID
     Indication: PNEUMONIA
     Route: 042
     Dates: start: 20160107, end: 20160204
  6. ASPIRIN. [Concomitant]
     Active Substance: ASPIRIN
  7. CLONAZEPAM. [Concomitant]
     Active Substance: CLONAZEPAM
  8. METHYLPREDNISOLONE. [Concomitant]
     Active Substance: METHYLPREDNISOLONE
  9. METOPROLOL TARTRATE. [Concomitant]
     Active Substance: METOPROLOL TARTRATE
  10. TACROLIMUS. [Concomitant]
     Active Substance: TACROLIMUS
  11. CEFOXITIN [Concomitant]
     Active Substance: CEFOXITIN SODIUM
  12. MYCOPHENOLATE [Concomitant]
     Active Substance: MYCOPHENOLIC ACID

REACTIONS (2)
  - Acute kidney injury [None]
  - Thrombocytopenia [None]

NARRATIVE: CASE EVENT DATE: 20160204
